FAERS Safety Report 15194978 (Version 1)
Quarter: 2018Q4

REPORT INFORMATION
  Report Type: Spontaneous
  Country: US (occurrence: US)
  Receive Date: 20180725
  Receipt Date: 20180725
  Transmission Date: 20190204
  Serious: No
  Sender: FDA-Public Use
  Company Number: US-SA-2018SA192337

PATIENT
  Age: 5 Year
  Sex: Female

DRUGS (1)
  1. CHILDRENS XYZAL ALLERGY 24HR [Suspect]
     Active Substance: LEVOCETIRIZINE DIHYDROCHLORIDE
     Dosage: UNK UNK, QD

REACTIONS (1)
  - Product prescribing error [Unknown]
